FAERS Safety Report 9922209 (Version 2)
Quarter: 2014Q1

REPORT INFORMATION
  Report Type: Spontaneous
  Country: US (occurrence: US)
  Receive Date: 20140225
  Receipt Date: 20140226
  Transmission Date: 20141002
  Serious: No
  Sender: FDA-Public Use
  Company Number: US-009507513-1402USA010141

PATIENT
  Age: 50 Year
  Sex: Female

DRUGS (2)
  1. DULERA [Suspect]
     Indication: BRONCHITIS
     Dosage: 2 DF, BID ()2 PUFFS TWICE DAILY
     Route: 048
     Dates: start: 20140217
  2. AZITHROMYCIN [Suspect]
     Indication: BRONCHITIS
     Dosage: UNK

REACTIONS (4)
  - Dyspnoea [Not Recovered/Not Resolved]
  - Drug ineffective [Not Recovered/Not Resolved]
  - Product quality issue [Unknown]
  - Drug dose omission [Unknown]
